FAERS Safety Report 8680222 (Version 2)
Quarter: 2012Q4

REPORT INFORMATION
  Report Type: 
  Country: AU (occurrence: AU)
  Receive Date: 20120724
  Receipt Date: 20120928
  Transmission Date: 20130627
  Serious: Yes (Hospitalization, Other)
  Sender: FDA-Public Use
  Company Number: AU-ROCHE-1091495

PATIENT
  Age: 83 Year
  Sex: Female

DRUGS (4)
  1. LUCENTIS [Suspect]
     Indication: CHOROIDAL NEOVASCULARISATION
     Route: 050
     Dates: start: 20120319
  2. LUCENTIS [Suspect]
     Route: 050
     Dates: start: 20120618
  3. CORDILOX [Concomitant]
  4. PANADOL [Concomitant]

REACTIONS (7)
  - Pancreatic carcinoma stage II [Unknown]
  - Cerebrovascular accident [Recovered/Resolved with Sequelae]
  - Metastases to peritoneum [Unknown]
  - Splenic vein thrombosis [Unknown]
  - Mesenteric vein thrombosis [Unknown]
  - Back pain [Unknown]
  - Decreased appetite [Unknown]
